FAERS Safety Report 20050089 (Version 1)
Quarter: 2021Q4

REPORT INFORMATION
  Report Type: Spontaneous
  Country: US (occurrence: US)
  Receive Date: 20211109
  Receipt Date: 20211109
  Transmission Date: 20220303
  Serious: No
  Sender: FDA-Public Use
  Company Number: US-PFIZER INC-2021667050

PATIENT
  Age: 62 Year
  Sex: Female
  Weight: 55.8 kg

DRUGS (3)
  1. SPIRONOLACTONE [Suspect]
     Active Substance: SPIRONOLACTONE
     Dosage: UNK
  2. TYVASO [Suspect]
     Active Substance: TREPROSTINIL
     Indication: Pulmonary arterial hypertension
     Dosage: UNK, 4X/DAY (18-54 UG (3-9 BREATHS))
     Route: 055
     Dates: start: 20191218
  3. TADALAFIL [Suspect]
     Active Substance: TADALAFIL
     Dosage: UNK

REACTIONS (3)
  - Heart rate increased [Unknown]
  - Echocardiogram abnormal [Unknown]
  - Product storage error [Unknown]
